FAERS Safety Report 9460265 (Version 3)
Quarter: 2013Q4

REPORT INFORMATION
  Report Type: Spontaneous
  Country: US (occurrence: US)
  Receive Date: 20130815
  Receipt Date: 20131219
  Transmission Date: 20140711
  Serious: Yes (Other)
  Sender: FDA-Public Use
  Company Number: US-PFIZER INC-2013237033

PATIENT
  Sex: Female

DRUGS (1)
  1. LYRICA [Suspect]
     Dosage: 100 MG, 4X/DAY (100 MG CAPSULE X 1 EVERY 6 HRS)

REACTIONS (3)
  - Walking aid user [Unknown]
  - Gait disturbance [Unknown]
  - Product label issue [Unknown]
